FAERS Safety Report 8133611-0 (Version None)
Quarter: 2012Q1

REPORT INFORMATION
  Report Type: 
  Country: None (occurrence: None)
  Receive Date: 20120213
  Receipt Date: 20120210
  Transmission Date: 20120608
  Serious: Yes (Death, Hospitalization)
  Sender: FDA-Public Use
  Company Number: ES-ROCHE-756474

PATIENT
  Sex: Male
  Weight: 71 kg

DRUGS (4)
  1. LOSARTAN POTASSIUM [Concomitant]
  2. AVASTIN [Suspect]
     Indication: COLORECTAL CANCER
     Route: 042
     Dates: start: 20101215, end: 20110105
  3. XELODA [Suspect]
     Indication: COLORECTAL CANCER
     Dosage: DATE OF LAST DOSE PRIOR TO THE SAE : UNKNOWN. FREQUENCY: EVERY 12 HOURS
     Route: 048
     Dates: start: 20101215, end: 20110113
  4. OXALIPLATIN [Suspect]
     Indication: COLORECTAL CANCER
     Route: 042
     Dates: start: 20101215, end: 20110105

REACTIONS (4)
  - HYPOVOLAEMIC SHOCK [None]
  - GASTROINTESTINAL HAEMORRHAGE [None]
  - GASTROINTESTINAL TOXICITY [None]
  - RENAL FAILURE [None]
